FAERS Safety Report 8994868 (Version 1)
Quarter: 2012Q4

REPORT INFORMATION
  Report Type: Spontaneous
  Country: GB (occurrence: None)
  Receive Date: 20121221
  Receipt Date: 20121221
  Transmission Date: 20130627
  Serious: Yes (Death, Hospitalization, Other)
  Sender: FDA-Public Use
  Company Number: THQ2012A11193

PATIENT
  Age: 39 Year
  Sex: Male

DRUGS (11)
  1. LANSOPRAZOLE (LANSOPRAZOLE) [Suspect]
  2. TACROLIMUS [Suspect]
     Indication: IMMUNOSUPPRESSANT DRUG THERAPY
     Dosage: 0.2 mg/kg (0.1 mg/kg, 2 in 1 D)
  3. ABACAVIR [Suspect]
     Indication: DRUG THERAPY
     Dates: start: 1995
  4. LAMIVUDINE [Suspect]
     Indication: DRUG THERAPY
     Dates: start: 1995
  5. NEVIRAPINE [Suspect]
     Indication: DRUG THERAPY
     Dates: start: 1995
  6. PREDNISOLONE [Concomitant]
  7. METHYLPREDNISOLONE [Concomitant]
  8. CICLOSPORIN [Concomitant]
  9. BASILIXIMAB [Concomitant]
  10. MYCOPHENOLATE MOFETIL [Concomitant]
  11. ATORVASTATIN [Concomitant]

REACTIONS (8)
  - Lactic acidosis [None]
  - Somnolence [None]
  - Hypotension [None]
  - Vasoconstriction [None]
  - Malaise [None]
  - Hepatic steatosis [None]
  - Renal impairment [None]
  - Drug interaction [None]
